FAERS Safety Report 6167176-X (Version None)
Quarter: 2009Q2

REPORT INFORMATION
  Report Type: 
  Country: None (occurrence: None)
  Receive Date: 20090424
  Receipt Date: 20090414
  Transmission Date: 20091009
  Serious: Yes (Hospitalization, Other)
  Sender: FDA-Public Use
  Company Number: JP-PFIZER INC-2009179150

PATIENT

DRUGS (2)
  1. LIPITOR [Suspect]
     Indication: HYPERLIPIDAEMIA
     Route: 048
  2. WARFARIN [Suspect]

REACTIONS (3)
  - DRUG INTERACTION [None]
  - PROTHROMBIN TIME PROLONGED [None]
  - SUBDURAL HAEMATOMA [None]
